FAERS Safety Report 5983620-2 (Version None)
Quarter: 2008Q4

REPORT INFORMATION
  Report Type: 
  Country: None (occurrence: None)
  Receive Date: 20081205
  Receipt Date: 20081205
  Transmission Date: 20090506
  Serious: Yes (Death, Hospitalization)
  Sender: FDA-Public Use
  Company Number: None

PATIENT
  Sex: Male
  Weight: 79 kg

DRUGS (1)
  1. TEMOZOLOMIDE [Suspect]
     Dosage: 6000 MG

REACTIONS (17)
  - ALPHA HAEMOLYTIC STREPTOCOCCAL INFECTION [None]
  - APHASIA [None]
  - ASTROCYTOMA [None]
  - BLOOD PRESSURE DECREASED [None]
  - CEREBRAL CYST [None]
  - DYSPHASIA [None]
  - FACIAL PALSY [None]
  - FEBRILE NEUTROPENIA [None]
  - GRAND MAL CONVULSION [None]
  - HEMIPARESIS [None]
  - HEMIPLEGIA [None]
  - MONOPLEGIA [None]
  - MUSCULAR WEAKNESS [None]
  - NEOPLASM PROGRESSION [None]
  - NEUROLOGICAL DECOMPENSATION [None]
  - URINARY INCONTINENCE [None]
  - WHITE BLOOD CELL COUNT DECREASED [None]
